FAERS Safety Report 11224124 (Version 1)
Quarter: 2015Q2

REPORT INFORMATION
  Report Type: Spontaneous
  Country: US (occurrence: None)
  Receive Date: 20150626
  Receipt Date: 20150626
  Transmission Date: 20150821
  Serious: Yes (Hospitalization)
  Sender: FDA-Public Use
  Company Number: None

PATIENT
  Age: 8 Year
  Sex: Female
  Weight: 36.5 kg

DRUGS (4)
  1. ETOPOSIDE (VP-16) [Suspect]
     Active Substance: ETOPOSIDE
     Dates: end: 20091102
  2. CISPLATIN. [Suspect]
     Active Substance: CISPLATIN
     Dates: end: 20091031
  3. CYCLOPHOSPHAMIDE. [Suspect]
     Active Substance: CYCLOPHOSPHAMIDE
     Dates: end: 20091102
  4. VINCRISTINE SULFATE. [Suspect]
     Active Substance: VINCRISTINE SULFATE
     Dates: end: 20091114

REACTIONS (5)
  - Lymphoproliferative disorder [None]
  - Epstein-Barr virus infection [None]
  - Respiratory distress [None]
  - Pancytopenia [None]
  - Multi-organ failure [None]

NARRATIVE: CASE EVENT DATE: 20100421
